FAERS Safety Report 12620946 (Version 1)
Quarter: 2016Q3

REPORT INFORMATION
  Report Type: Spontaneous
  Country: US (occurrence: None)
  Receive Date: 20160803
  Receipt Date: 20160803
  Transmission Date: 20161109
  Serious: Yes (Hospitalization)
  Sender: FDA-Public Use
  Company Number: None

PATIENT
  Age: 77 Year
  Sex: Female

DRUGS (1)
  1. NIVOLUMAB [Suspect]
     Active Substance: NIVOLUMAB
     Indication: LUNG NEOPLASM MALIGNANT

REACTIONS (6)
  - Aphasia [None]
  - Gait disturbance [None]
  - Seizure [None]
  - Encephalitis [None]
  - Autoimmune disorder [None]
  - Tremor [None]

NARRATIVE: CASE EVENT DATE: 20160802
